FAERS Safety Report 25428076 (Version 4)
Quarter: 2025Q3

REPORT INFORMATION
  Report Type: Report from Study
  Country: US (occurrence: US)
  Receive Date: 20250612
  Receipt Date: 20250925
  Transmission Date: 20251020
  Serious: No
  Sender: SUNOVION
  Company Number: US-SMPA-2025SPA006288AA

PATIENT
  Age: 81 Year
  Sex: Male

DRUGS (4)
  1. ORGOVYX [Suspect]
     Active Substance: RELUGOLIX
     Indication: Prostate cancer
     Route: 048
     Dates: start: 20250430, end: 20250430
  2. ORGOVYX [Suspect]
     Active Substance: RELUGOLIX
     Dosage: 120 MG, QD
     Route: 048
     Dates: start: 20250501
  3. NUBEQA [Suspect]
     Active Substance: DAROLUTAMIDE
     Indication: Product used for unknown indication
  4. ABIRATERONE [Concomitant]
     Active Substance: ABIRATERONE

REACTIONS (13)
  - Oesophageal pain [Recovered/Resolved]
  - Eructation [Unknown]
  - Gastrooesophageal reflux disease [Unknown]
  - Discomfort [Unknown]
  - Liver disorder [Unknown]
  - Hiccups [Unknown]
  - Hepatic enzyme increased [Unknown]
  - Gastrointestinal sounds abnormal [Unknown]
  - Taste disorder [Unknown]
  - Chest pain [Unknown]
  - Abdominal discomfort [Unknown]
  - Diarrhoea [Unknown]
  - Product dose omission issue [Recovered/Resolved]
